FAERS Safety Report 9068993 (Version 1)
Quarter: 2013Q1

REPORT INFORMATION
  Report Type: Spontaneous
  Country: US (occurrence: None)
  Receive Date: 20130213
  Receipt Date: 20130213
  Transmission Date: 20140127
  Serious: Yes (Hospitalization)
  Sender: FDA-Public Use
  Company Number: None

PATIENT
  Age: 90 Year
  Sex: Male

DRUGS (2)
  1. DIPHENHYDRAMINE [Suspect]
     Indication: UPPER RESPIRATORY TRACT INFECTION
     Route: 048
     Dates: start: 20130201, end: 20130205
  2. DEXTROMETHORPHAN/GUAIFENESIN [Suspect]
     Indication: UPPER RESPIRATORY TRACT INFECTION
     Route: 048
     Dates: start: 20130201, end: 20130205

REACTIONS (5)
  - Confusional state [None]
  - Hallucination, visual [None]
  - Fatigue [None]
  - Diarrhoea [None]
  - Agitation [None]
